FAERS Safety Report 9742236 (Version 3)
Quarter: 2013Q4

REPORT INFORMATION
  Report Type: Report from Study
  Country: US (occurrence: US)
  Receive Date: 20131210
  Receipt Date: 20131224
  Transmission Date: 20140711
  Serious: No
  Sender: FDA-Public Use
  Company Number: US-JNJFOC-20131017195

PATIENT
  Age: 45 Year
  Sex: Female

DRUGS (5)
  1. DURAGESIC [Suspect]
     Indication: NEURALGIA
     Route: 062
     Dates: start: 201102
  2. DURAGESIC [Suspect]
     Indication: NEURALGIA
     Route: 062
     Dates: start: 201102
  3. DURAGESIC [Suspect]
     Indication: COMPLEX REGIONAL PAIN SYNDROME
     Route: 062
     Dates: start: 201102
  4. DURAGESIC [Suspect]
     Indication: COMPLEX REGIONAL PAIN SYNDROME
     Route: 062
     Dates: start: 201102
  5. AMBIEN [Concomitant]
     Indication: SLEEP APNOEA SYNDROME
     Route: 065
     Dates: start: 20111011

REACTIONS (3)
  - Stress [Not Recovered/Not Resolved]
  - Pain [Not Recovered/Not Resolved]
  - Inappropriate schedule of drug administration [Not Recovered/Not Resolved]
